FAERS Safety Report 21670096 (Version 7)
Quarter: 2022Q4

REPORT INFORMATION
  Report Type: Report from Study
  Country: BR (occurrence: None)
  Receive Date: 20221201
  Receipt Date: 20221222
  Transmission Date: 20230113
  Serious: Yes (Death, Hospitalization)
  Sender: FDA-Public Use
  Company Number: BR-ROCHE-3218290

PATIENT
  Age: 56 Year
  Sex: Female
  Weight: 62.9 kg

DRUGS (14)
  1. ATEZOLIZUMAB [Suspect]
     Active Substance: ATEZOLIZUMAB
     Indication: Breast cancer metastatic
     Dosage: START DATE OF MOST RECENT DOSE OF STUDY DRUG PRIOR TO AE AND SAE: 11/NOV/2022
     Route: 041
     Dates: start: 20221111
  2. ADO-TRASTUZUMAB EMTANSINE [Suspect]
     Active Substance: ADO-TRASTUZUMAB EMTANSINE
     Indication: Breast cancer metastatic
     Dosage: START DATE OF MOST RECENT DOSE OF STUDY DRUG PRIOR TO AE AND SAE: 11/NOV/2022
     Route: 042
     Dates: start: 20221111
  3. METAMIZOLE SODIUM [Concomitant]
     Active Substance: METAMIZOLE SODIUM
     Indication: Hyperthermia
     Route: 042
     Dates: start: 20221111, end: 20221111
  4. MORPHINE SULFATE [Concomitant]
     Active Substance: MORPHINE SULFATE
     Indication: Analgesic therapy
     Route: 042
     Dates: start: 20221111, end: 20221111
  5. DROPROPIZINE [Concomitant]
     Active Substance: DROPROPIZINE
     Indication: Cough
     Route: 048
     Dates: start: 20221111, end: 20221111
  6. PROMETHAZINE [Concomitant]
     Active Substance: PROMETHAZINE HYDROCHLORIDE
     Route: 030
     Dates: start: 20221111, end: 20221111
  7. PIPERACILLIN SODIUM\TAZOBACTAM SODIUM [Concomitant]
     Active Substance: PIPERACILLIN SODIUM\TAZOBACTAM SODIUM
     Indication: Sepsis
     Route: 042
     Dates: start: 20221112, end: 20221113
  8. FENOTEROL HYDROBROMIDE [Concomitant]
     Active Substance: FENOTEROL HYDROBROMIDE
     Route: 042
     Dates: start: 20221111, end: 20221115
  9. BROMOPRIDE [Concomitant]
     Active Substance: BROMOPRIDE
     Route: 042
     Dates: start: 20221112, end: 20221126
  10. PANTOPRAZOLE [Concomitant]
     Active Substance: PANTOPRAZOLE
     Indication: Prophylaxis
     Route: 042
     Dates: start: 20221112, end: 20221126
  11. THIAMINE CHLORIDE HYDROCHLORIDE [Concomitant]
     Route: 042
     Dates: start: 20221112, end: 20221126
  12. FUROSEMIDE [Concomitant]
     Active Substance: FUROSEMIDE
     Route: 042
     Dates: start: 20221112, end: 20221126
  13. ENOXAPARIN SODIUM [Concomitant]
     Active Substance: ENOXAPARIN SODIUM
     Route: 058
     Dates: start: 20221113, end: 20221120
  14. SERETIDE [Concomitant]
     Active Substance: FLUTICASONE PROPIONATE\SALMETEROL XINAFOATE
     Dosage: 1 PUFF
     Route: 055
     Dates: start: 20221113, end: 20221116

REACTIONS (1)
  - Infusion related reaction [Fatal]

NARRATIVE: CASE EVENT DATE: 20221111
